FAERS Safety Report 17459298 (Version 1)
Quarter: 2020Q1

REPORT INFORMATION
  Report Type: Spontaneous
  Country: US (occurrence: US)
  Receive Date: 20200226
  Receipt Date: 20200226
  Transmission Date: 20200409
  Serious: Yes (Hospitalization, Other)
  Sender: FDA-Public Use
  Company Number: US-JAZZ-2020-US-002636

PATIENT
  Age: 14 Year
  Sex: Male
  Weight: 61.1 kg

DRUGS (7)
  1. ERWINAZE [Suspect]
     Active Substance: ASPARAGINASE ERWINIA CHRYSANTHEMI
     Indication: ACUTE LYMPHOCYTIC LEUKAEMIA
     Dosage: 40000 (6 INJECTIONS OVER 2 WEEKS)
     Route: 030
     Dates: start: 20191219, end: 20191221
  2. ERWINAZE [Suspect]
     Active Substance: ASPARAGINASE ERWINIA CHRYSANTHEMI
     Dosage: SECOND ASPARAGINASE INFUSION
     Route: 030
     Dates: start: 20191221, end: 20191221
  3. CYCLOPHOSPHAMIDE. [Suspect]
     Active Substance: CYCLOPHOSPHAMIDE
     Indication: ACUTE LYMPHOCYTIC LEUKAEMIA
     Dosage: 1600 MILLIGRAM, QD (D1D29)
     Route: 042
     Dates: start: 20190617
  4. THIOGUANINE [Suspect]
     Active Substance: THIOGUANINE
     Indication: ACUTE LYMPHOCYTIC LEUKAEMIA
     Dosage: 80 MG SUN / 120 MG M-SAT QHS (X 14 DAYS)
     Route: 048
     Dates: start: 20191206
  5. METHOTREXATE. [Suspect]
     Active Substance: METHOTREXATE
     Indication: ACUTE LYMPHOCYTIC LEUKAEMIA
     Dosage: 15 MILLIGRAM (D1D1, D29 AND D36)
     Route: 037
     Dates: start: 20190617
  6. CYTARABINE. [Suspect]
     Active Substance: CYTARABINE
     Indication: ACUTE LYMPHOCYTIC LEUKAEMIA
     Dosage: 120 MILLIGRAM, QD (ON D1D36-39 )
     Route: 042
     Dates: start: 20190617
  7. VINCRISTINE [Suspect]
     Active Substance: VINCRISTINE
     Indication: ACUTE LYMPHOCYTIC LEUKAEMIA
     Dosage: 2 MILLIGRAM ON D1D1, D8, D15, D43, D50
     Route: 042
     Dates: start: 20190701

REACTIONS (3)
  - Hyperammonaemia [Recovered/Resolved]
  - Febrile neutropenia [Recovered/Resolved]
  - Upper gastrointestinal haemorrhage [Recovered/Resolved]

NARRATIVE: CASE EVENT DATE: 20191224
